FAERS Safety Report 24153913 (Version 1)
Quarter: 2024Q3

REPORT INFORMATION
  Report Type: Spontaneous
  Country: CN (occurrence: CN)
  Receive Date: 20240730
  Receipt Date: 20240730
  Transmission Date: 20241017
  Serious: Yes (Disabling, Other)
  Sender: MERCK
  Company Number: CN-009507513-2407CHN014923

PATIENT
  Age: 62 Year
  Sex: Female
  Weight: 65 kg

DRUGS (8)
  1. KEYTRUDA [Suspect]
     Active Substance: PEMBROLIZUMAB
     Indication: Pancreatic carcinoma
     Dosage: 200 MILLIGRAM, Q3W
     Route: 041
     Dates: start: 20240716, end: 20240716
  2. GEMCITABINE HYDROCHLORIDE [Suspect]
     Active Substance: GEMCITABINE HYDROCHLORIDE
     Indication: Pancreatic carcinoma
     Dosage: 1.4 GRAM, Q3W
     Route: 041
     Dates: start: 20240716, end: 20240716
  3. GEMCITABINE HYDROCHLORIDE [Suspect]
     Active Substance: GEMCITABINE HYDROCHLORIDE
     Dosage: 1.2 GRAM, Q3W (ON D8)
     Route: 041
     Dates: start: 202407, end: 202407
  4. PACLITAXEL [Suspect]
     Active Substance: PACLITAXEL
     Indication: Pancreatic carcinoma
     Dosage: 200 MILLIGRAM, Q3W
     Route: 041
     Dates: start: 20240716, end: 20240716
  5. PACLITAXEL [Suspect]
     Active Substance: PACLITAXEL
     Dosage: 100 MILLIGRAM, Q3W (ON D8)
     Route: 041
     Dates: start: 202407, end: 202407
  6. SODIUM CHLORIDE [Concomitant]
     Active Substance: SODIUM CHLORIDE
     Indication: Medication dilution
     Dosage: 100 MILLILITER, D1, Q21D, STRENGTH: 0.9%
     Dates: start: 20240716, end: 20240716
  7. SODIUM CHLORIDE [Concomitant]
     Active Substance: SODIUM CHLORIDE
     Dosage: 100 MILLILITER, D1, D8, Q21D, STRENGTH: 0.9%
     Dates: start: 20240716, end: 20240716
  8. SODIUM CHLORIDE [Concomitant]
     Active Substance: SODIUM CHLORIDE
     Dosage: 100 MILLILITER, D1, D8, Q21D, STRENGTH: 0.9%
     Dates: start: 20240716, end: 20240716

REACTIONS (3)
  - Myelosuppression [Unknown]
  - Rash pruritic [Unknown]
  - Product use issue [Unknown]

NARRATIVE: CASE EVENT DATE: 20240720
